FAERS Safety Report 10165595 (Version 1)
Quarter: 2014Q2

REPORT INFORMATION
  Report Type: Spontaneous
  Country: US (occurrence: US)
  Receive Date: 20140510
  Receipt Date: 20140510
  Transmission Date: 20141212
  Serious: No
  Sender: FDA-Public Use
  Company Number: US-BRISTOL-MYERS SQUIBB COMPANY-20562583

PATIENT
  Age: 63 Year
  Sex: Female

DRUGS (1)
  1. BYDUREON [Suspect]

REACTIONS (1)
  - Headache [Unknown]
